FAERS Safety Report 19815363 (Version 1)
Quarter: 2021Q3

REPORT INFORMATION
  Report Type: Spontaneous
  Country: US (occurrence: US)
  Receive Date: 20210910
  Receipt Date: 20210910
  Transmission Date: 20211014
  Serious: Yes (Other)
  Sender: FDA-Public Use
  Company Number: None

PATIENT
  Age: 71 Year
  Sex: Female
  Weight: 91 kg

DRUGS (1)
  1. BARICITINIB. [Suspect]
     Active Substance: BARICITINIB
     Indication: COVID-19 TREATMENT

REACTIONS (4)
  - Hypotension [None]
  - Liver function test increased [None]
  - Blood creatinine increased [None]
  - Mean arterial pressure increased [None]

NARRATIVE: CASE EVENT DATE: 20210910
